FAERS Safety Report 8440259-7 (Version None)
Quarter: 2012Q2

REPORT INFORMATION
  Report Type: 
  Country: None (occurrence: None)
  Receive Date: 20120615
  Receipt Date: 20120612
  Transmission Date: 20120825
  Serious: Yes (Hospitalization)
  Sender: FDA-Public Use
  Company Number: FR-ROCHE-1077972

PATIENT
  Age: 70 Year
  Sex: Female

DRUGS (1)
  1. ZELBORAF [Suspect]
     Indication: METASTATIC MALIGNANT MELANOMA
     Route: 048
     Dates: start: 20120425, end: 20120506

REACTIONS (4)
  - ALANINE AMINOTRANSFERASE INCREASED [None]
  - PYREXIA [None]
  - RASH [None]
  - EOSINOPHILIA [None]
